FAERS Safety Report 10035695 (Version 1)
Quarter: 2014Q1

REPORT INFORMATION
  Report Type: Spontaneous
  Country: IT (occurrence: IT)
  Receive Date: 20140325
  Receipt Date: 20140325
  Transmission Date: 20141002
  Serious: Yes (Other)
  Sender: FDA-Public Use
  Company Number: IT-TEVA-468686ISR

PATIENT
  Age: 67 Year
  Sex: Female
  Weight: 68 kg

DRUGS (1)
  1. CEFTRIAXONE [Suspect]
     Indication: BRONCHITIS
     Dosage: 1 G TOTAL
     Route: 030
     Dates: start: 20140303, end: 20140303

REACTIONS (2)
  - Pruritus [Recovered/Resolved]
  - Oropharyngeal pain [Recovered/Resolved]
